FAERS Safety Report 21682599 (Version 2)
Quarter: 2024Q1

REPORT INFORMATION
  Report Type: Report from Study
  Country: CA (occurrence: CA)
  Receive Date: 20221205
  Receipt Date: 20240215
  Transmission Date: 20240410
  Serious: Yes (Other)
  Sender: FDA-Public Use
  Company Number: CA-TAKEDA-2022TUS091742

PATIENT
  Age: 56 Year
  Sex: Male

DRUGS (32)
  1. VEDOLIZUMAB [Suspect]
     Active Substance: VEDOLIZUMAB
     Indication: Crohn^s disease
     Dosage: 300 MILLIGRAM
     Route: 042
     Dates: start: 20190531
  2. VEDOLIZUMAB [Suspect]
     Active Substance: VEDOLIZUMAB
     Dosage: 300 MILLIGRAM, Q4WEEKS
     Route: 042
     Dates: start: 20210210
  3. VEDOLIZUMAB [Suspect]
     Active Substance: VEDOLIZUMAB
     Dosage: 300 MILLIGRAM, Q4WEEKS
     Route: 042
  4. COLCHICINE [Concomitant]
     Active Substance: COLCHICINE
     Dosage: 0.6 MILLIGRAM
     Route: 048
  5. SULFATRIM [Concomitant]
     Active Substance: SULFAMETHOXAZOLE\TRIMETHOPRIM
     Dosage: UNK
  6. PANTOPRAZOLE SODIUM [Concomitant]
     Active Substance: PANTOPRAZOLE SODIUM
     Dosage: 40 MILLIGRAM
     Route: 048
  7. SIMVASTATIN [Concomitant]
     Active Substance: SIMVASTATIN
     Dosage: 10 MILLIGRAM, QD
     Route: 048
  8. FERROUS SULFATE [Concomitant]
     Active Substance: FERROUS SULFATE
     Dosage: 300 MILLIGRAM
     Route: 048
  9. MAGNESIUM OXIDE [Concomitant]
     Active Substance: MAGNESIUM OXIDE
     Dosage: 835 MILLIGRAM
     Route: 048
  10. ALENDRONATE [Concomitant]
     Active Substance: ALENDRONATE SODIUM
     Dosage: 70 MILLIGRAM
     Route: 048
  11. ALENDRONATE [Concomitant]
     Active Substance: ALENDRONATE SODIUM
     Dosage: UNK UNK, 1/WEEK
     Route: 048
  12. CALCIUM [Concomitant]
     Active Substance: CALCIUM
     Dosage: 500 MILLIGRAM
     Route: 048
  13. VITAMIN D [Concomitant]
     Active Substance: VITAMIN D NOS
     Dosage: UNK
     Route: 048
  14. VITAMIN D [Concomitant]
     Active Substance: VITAMIN D NOS
     Dosage: UNK
     Route: 048
  15. ASPIRIN [Concomitant]
     Active Substance: ASPIRIN
     Dosage: 80 MILLIGRAM
     Route: 048
  16. ALLOPURINOL [Concomitant]
     Active Substance: ALLOPURINOL
     Dosage: 300 MILLIGRAM
     Route: 048
  17. PROGRAF [Concomitant]
     Active Substance: TACROLIMUS
     Dosage: 2 MILLIGRAM, QD
     Route: 048
  18. PROGRAF [Concomitant]
     Active Substance: TACROLIMUS
     Dosage: 2.5 MILLIGRAM, QD
  19. CANDESARTAN [Concomitant]
     Active Substance: CANDESARTAN
     Dosage: 16 MILLIGRAM
     Route: 048
  20. HYDROMORPHONE [Concomitant]
     Active Substance: HYDROMORPHONE
     Dosage: UNK
  21. PREDNISONE [Concomitant]
     Active Substance: PREDNISONE
     Dosage: 7.5 MILLIGRAM, QD
     Route: 048
  22. MOMETASONE [Concomitant]
     Active Substance: MOMETASONE
     Dosage: UNK
  23. ALBUTEROL [Concomitant]
     Active Substance: ALBUTEROL
     Dosage: UNK
  24. TYLENOL [Concomitant]
     Active Substance: ACETAMINOPHEN
     Dosage: UNK
  25. ZENHALE [Concomitant]
     Active Substance: FORMOTEROL FUMARATE\MOMETASONE FUROATE
     Dosage: UNK
  26. LOSARTAN [Concomitant]
     Active Substance: LOSARTAN
     Dosage: UNK
  27. IRON [Concomitant]
     Active Substance: IRON
     Dosage: UNK
  28. RESTORIL [Concomitant]
     Active Substance: TEMAZEPAM
     Dosage: 30 MILLIGRAM
     Route: 048
  29. METHOTREXATE [Concomitant]
     Active Substance: METHOTREXATE
     Dosage: 15 MILLIGRAM, 1/WEEK
  30. FOLIC ACID [Concomitant]
     Active Substance: FOLIC ACID
     Dosage: UNK
     Route: 048
  31. PANTOPRAZOLE [Concomitant]
     Active Substance: PANTOPRAZOLE
     Dosage: 40 MILLIGRAM, QD
     Route: 048
  32. MAGNESIUM [Concomitant]
     Active Substance: MAGNESIUM
     Dosage: 835 MILLIGRAM, TID
     Route: 048

REACTIONS (3)
  - Squamous cell carcinoma of skin [Recovering/Resolving]
  - Neoplasm skin [Recovering/Resolving]
  - Off label use [Unknown]

NARRATIVE: CASE EVENT DATE: 20210210
